FAERS Safety Report 8699825 (Version 2)
Quarter: 2012Q4

REPORT INFORMATION
  Report Type: 
  Country: US (occurrence: US)
  Receive Date: 20120802
  Receipt Date: 20120907
  Transmission Date: 20130627
  Serious: No
  Sender: FDA-Public Use
  Company Number: US-ASTRAZENECA-2012SE51211

PATIENT
  Age: 58 Year
  Sex: Female
  Weight: 81.6 kg

DRUGS (3)
  1. NEXIUM [Suspect]
     Indication: OESOPHAGEAL DISORDER
     Route: 048
     Dates: start: 2010, end: 201112
  2. NEXIUM [Suspect]
     Indication: OESOPHAGEAL DISORDER
     Dosage: FOUR TIMES PER WEEK
     Route: 048
     Dates: start: 201201
  3. PRILOSEC OTC [Suspect]
     Indication: OESOPHAGEAL DISORDER
     Route: 048

REACTIONS (8)
  - Throat tightness [Unknown]
  - Dysphonia [Unknown]
  - Throat irritation [Unknown]
  - Respiratory tract congestion [Unknown]
  - Intentional drug misuse [Unknown]
  - Drug dose omission [Unknown]
  - Drug ineffective [Unknown]
  - Off label use [Unknown]
